FAERS Safety Report 6094799-9 (Version None)
Quarter: 2009Q1

REPORT INFORMATION
  Report Type: 
  Country: None (occurrence: None)
  Receive Date: 20090225
  Receipt Date: 20090212
  Transmission Date: 20090719
  Serious: Yes (Hospitalization)
  Sender: FDA-Public Use
  Company Number: 230608K09USA

PATIENT
  Age: 49 Year
  Sex: Female
  Weight: 78 kg

DRUGS (5)
  1. REBIF [Suspect]
     Indication: MULTIPLE SCLEROSIS
     Dosage: 44 MCG, 3 IN 1 WEEKS, SUBCUTANEOUS
     Route: 058
     Dates: start: 20080827, end: 20081218
  2. SEASONALE [Suspect]
     Indication: CONTRACEPTION
  3. ZIAC [Concomitant]
  4. CARDIZEM [Concomitant]
  5. BACLOFEN [Concomitant]

REACTIONS (1)
  - DEEP VEIN THROMBOSIS [None]
